FAERS Safety Report 20736154 (Version 4)
Quarter: 2022Q3

REPORT INFORMATION
  Report Type: Report from Study
  Country: AU (occurrence: None)
  Receive Date: 20220421
  Receipt Date: 20220727
  Transmission Date: 20221027
  Serious: Yes (Hospitalization)
  Sender: FDA-Public Use
  Company Number: AU-ROCHE-3074103

PATIENT
  Age: 67 Year
  Sex: Male

DRUGS (30)
  1. CABOZANTINIB [Suspect]
     Active Substance: CABOZANTINIB
     Indication: Hormone-refractory prostate cancer
     Route: 048
     Dates: start: 20220128, end: 20220308
  2. CABOZANTINIB [Suspect]
     Active Substance: CABOZANTINIB
     Route: 048
     Dates: start: 20220314
  3. ATEZOLIZUMAB [Suspect]
     Active Substance: ATEZOLIZUMAB
     Indication: Hormone-refractory prostate cancer
     Route: 041
     Dates: start: 20220128
  4. ATEZOLIZUMAB [Suspect]
     Active Substance: ATEZOLIZUMAB
     Route: 041
     Dates: start: 20220216
  5. ATEZOLIZUMAB [Suspect]
     Active Substance: ATEZOLIZUMAB
     Route: 041
     Dates: start: 20220309
  6. ATEZOLIZUMAB [Suspect]
     Active Substance: ATEZOLIZUMAB
     Route: 041
     Dates: start: 20220330
  7. ATEZOLIZUMAB [Suspect]
     Active Substance: ATEZOLIZUMAB
     Route: 042
     Dates: start: 20220420
  8. ATEZOLIZUMAB [Suspect]
     Active Substance: ATEZOLIZUMAB
     Route: 042
     Dates: start: 20220511
  9. ASPIRIN [Concomitant]
     Active Substance: ASPIRIN
     Dates: start: 20190708
  10. CRESTOR [Concomitant]
     Active Substance: ROSUVASTATIN CALCIUM
     Dates: start: 20210924
  11. ELIGARD [Concomitant]
     Active Substance: LEUPROLIDE ACETATE
     Dates: start: 20060101
  12. EZETIMIBE [Concomitant]
     Active Substance: EZETIMIBE
     Dates: start: 20210322
  13. JARDIANCE [Concomitant]
     Active Substance: EMPAGLIFLOZIN
     Dates: start: 20210924
  14. LIPIDIL [Concomitant]
     Active Substance: FENOFIBRATE
     Dates: start: 20210322
  15. METOPROLOL [Concomitant]
     Active Substance: METOPROLOL
     Dates: start: 20210322
  16. NOVORAPID [Concomitant]
     Active Substance: INSULIN ASPART
     Dates: start: 20210924
  17. ONDANSETRON [Concomitant]
     Active Substance: ONDANSETRON
     Dates: start: 20220328
  18. OPTISULIN (AUSTRALIA) [Concomitant]
     Dates: start: 20211206
  19. TEMAZEPAM [Concomitant]
     Active Substance: TEMAZEPAM
     Dates: start: 20220309
  20. RAMIPRIL [Concomitant]
     Active Substance: RAMIPRIL
     Dates: start: 20210730
  21. FLUCLOXACILLIN [Concomitant]
     Active Substance: FLUCLOXACILLIN
     Route: 065
     Dates: start: 20220331, end: 20220405
  22. GENTAMICIN [Concomitant]
     Active Substance: GENTAMICIN
     Route: 065
     Dates: start: 20220331, end: 20220331
  23. SODIUM CHLORIDE [Concomitant]
     Active Substance: SODIUM CHLORIDE
     Route: 065
     Dates: start: 20220331, end: 20220401
  24. EMPAGLIFLOZIN [Concomitant]
     Active Substance: EMPAGLIFLOZIN
  25. EZETIMIBE [Concomitant]
     Active Substance: EZETIMIBE
  26. FENOFIBRATE [Concomitant]
     Active Substance: FENOFIBRATE
  27. INSULIN ASPART [Concomitant]
     Active Substance: INSULIN ASPART
  28. INSULIN GLARGINE [Concomitant]
     Active Substance: INSULIN GLARGINE
  29. METOCLOPRAMIDE [Concomitant]
     Active Substance: METOCLOPRAMIDE
  30. RAMIPRIL [Concomitant]
     Active Substance: RAMIPRIL

REACTIONS (1)
  - Pyrexia [Recovered/Resolved]

NARRATIVE: CASE EVENT DATE: 20220331
